FAERS Safety Report 18968712 (Version 2)
Quarter: 2021Q1

REPORT INFORMATION
  Report Type: Spontaneous
  Country: AR (occurrence: AR)
  Receive Date: 20210304
  Receipt Date: 20210309
  Transmission Date: 20210420
  Serious: Yes (Disabling)
  Sender: FDA-Public Use
  Company Number: AR-PFIZER INC-2021197413

PATIENT
  Age: 7 Decade
  Sex: Female

DRUGS (2)
  1. AROMASIN [Suspect]
     Active Substance: EXEMESTANE
     Indication: BREAST CANCER METASTATIC
     Dosage: UNK
  2. EVEROLIMUS. [Concomitant]
     Active Substance: EVEROLIMUS
     Indication: BREAST CANCER METASTATIC
     Dosage: UNK

REACTIONS (3)
  - Neoplasm progression [Unknown]
  - Off label use [Unknown]
  - Loss of personal independence in daily activities [Unknown]
